FAERS Safety Report 7064893-4 (Version None)
Quarter: 2010Q4

REPORT INFORMATION
  Report Type: 
  Country: None (occurrence: None)
  Receive Date: 20101027
  Receipt Date: 19920507
  Transmission Date: 20110411
  Serious: Yes (Death, Life-Threatening, Hospitalization)
  Sender: FDA-Public Use
  Company Number: US-ROCHE-920200829001

PATIENT
  Age: 67 Year
  Sex: Male

DRUGS (2)
  1. ROFERON-A [Suspect]
     Route: 058
  2. INTERFERON GAMMA-1A [Suspect]
     Route: 042

REACTIONS (2)
  - DEATH [None]
  - RENAL FAILURE ACUTE [None]
